FAERS Safety Report 25390787 (Version 1)
Quarter: 2025Q2

REPORT INFORMATION
  Report Type: Report from Study
  Country: US (occurrence: US)
  Receive Date: 20250603
  Receipt Date: 20250603
  Transmission Date: 20250716
  Serious: Yes (Hospitalization)
  Sender: EISAI
  Company Number: US-Eisai-EC-2025-189496

PATIENT
  Age: 83 Year
  Sex: Female
  Weight: 68 kg

DRUGS (12)
  1. LENVIMA [Suspect]
     Active Substance: LENVATINIB
     Indication: Hepatic cancer
     Dates: start: 202505, end: 202505
  2. LENVIMA [Suspect]
     Active Substance: LENVATINIB
     Dates: start: 202505, end: 20250520
  3. LENVIMA [Suspect]
     Active Substance: LENVATINIB
     Dates: start: 20250522
  4. METOPROLOL [Concomitant]
     Active Substance: METOPROLOL
     Indication: Hypertension
  5. METOPROLOL [Concomitant]
     Active Substance: METOPROLOL
  6. JARDIANCE [Concomitant]
     Active Substance: EMPAGLIFLOZIN
  7. LACTULOSE [Concomitant]
     Active Substance: LACTULOSE
  8. METHIMAZOLE [Concomitant]
     Active Substance: METHIMAZOLE
  9. OMEPRAZOLE [Concomitant]
     Active Substance: OMEPRAZOLE
  10. ROSUVASTATIN [Concomitant]
     Active Substance: ROSUVASTATIN
  11. TRULICITY [Concomitant]
     Active Substance: DULAGLUTIDE
  12. VITAMIN D3 [Concomitant]
     Active Substance: CHOLECALCIFEROL

REACTIONS (5)
  - Hypertension [Unknown]
  - Ammonia increased [Unknown]
  - Asthenia [Not Recovered/Not Resolved]
  - Fatigue [Not Recovered/Not Resolved]
  - Somnolence [Unknown]

NARRATIVE: CASE EVENT DATE: 20250501
